FAERS Safety Report 13701482 (Version 1)
Quarter: 2017Q2

REPORT INFORMATION
  Report Type: Spontaneous
  Country: US (occurrence: US)
  Receive Date: 20170628
  Receipt Date: 20170628
  Transmission Date: 20170830
  Serious: Yes (Other)
  Sender: FDA-Public Use
  Company Number: None

PATIENT
  Age: 44 Year
  Sex: Female
  Weight: 72 kg

DRUGS (3)
  1. ALPRAZOLAM. [Concomitant]
     Active Substance: ALPRAZOLAM
  2. NAPROXEN. [Concomitant]
     Active Substance: NAPROXEN
  3. CHEWABLE ASPIRIN [Suspect]
     Active Substance: ASPIRIN
     Indication: ARRHYTHMIA
     Dosage: ?          OTHER STRENGTH:MG;?
     Route: 048

REACTIONS (1)
  - Atrophy [None]

NARRATIVE: CASE EVENT DATE: 20170626
